FAERS Safety Report 21942926 (Version 2)
Quarter: 2023Q2

REPORT INFORMATION
  Report Type: Report from Study
  Country: US (occurrence: US)
  Receive Date: 20230202
  Receipt Date: 20230421
  Transmission Date: 20230722
  Serious: No
  Sender: FDA-Public Use
  Company Number: US-002147023-NVSC2023US018337

PATIENT
  Sex: Female

DRUGS (2)
  1. KESIMPTA [Suspect]
     Active Substance: OFATUMUMAB
     Indication: Product used for unknown indication
     Dosage: UNK
     Route: 065
  2. KESIMPTA [Suspect]
     Active Substance: OFATUMUMAB
     Dosage: SECOND INJECTIONS
     Route: 065
     Dates: start: 202207

REACTIONS (4)
  - Diplopia [Unknown]
  - Gait disturbance [Unknown]
  - Hypertrichosis [Unknown]
  - Dizziness [Unknown]
